FAERS Safety Report 9188008 (Version 1)
Quarter: 2013Q1

REPORT INFORMATION
  Report Type: Report from Study
  Country: US (occurrence: US)
  Receive Date: 20130325
  Receipt Date: 20130325
  Transmission Date: 20140127
  Serious: Yes (Death)
  Sender: FDA-Public Use
  Company Number: US-ROCHE-1101681

PATIENT
  Age: 50 Year
  Sex: Female
  Weight: 60.84 kg

DRUGS (3)
  1. CAPECITABINE [Suspect]
     Indication: BREAST CANCER METASTATIC
     Dosage: 1500 MG IN MORNING AND 1000 MG IN EVENG
     Route: 048
     Dates: start: 201210, end: 201210
  2. TAXOTERE [Concomitant]
     Indication: BREAST CANCER METASTATIC
     Route: 042
  3. DOCETAXEL [Concomitant]
     Indication: BREAST CANCER METASTATIC
     Route: 042
     Dates: start: 20120810

REACTIONS (13)
  - Disease progression [Fatal]
  - Back pain [Not Recovered/Not Resolved]
  - Headache [Not Recovered/Not Resolved]
  - Pain in extremity [Not Recovered/Not Resolved]
  - Erythema [Not Recovered/Not Resolved]
  - Skin exfoliation [Not Recovered/Not Resolved]
  - Myalgia [Not Recovered/Not Resolved]
  - Arthralgia [Not Recovered/Not Resolved]
  - Hyperaesthesia [Not Recovered/Not Resolved]
  - Hyperaesthesia [Not Recovered/Not Resolved]
  - Skin exfoliation [Not Recovered/Not Resolved]
  - Arthralgia [Not Recovered/Not Resolved]
  - Nail disorder [Not Recovered/Not Resolved]
